FAERS Safety Report 16840108 (Version 1)
Quarter: 2019Q3

REPORT INFORMATION
  Report Type: Spontaneous
  Country: US (occurrence: US)
  Receive Date: 20190923
  Receipt Date: 20190923
  Transmission Date: 20191005
  Serious: No
  Sender: FDA-Public Use
  Company Number: US-PFIZER INC-2019406704

PATIENT
  Sex: Female
  Weight: 56.7 kg

DRUGS (1)
  1. PREMARIN [Suspect]
     Active Substance: ESTROGENS, CONJUGATED
     Indication: HYSTERECTOMY
     Dosage: 40 MG, 2X/DAY
     Route: 048

REACTIONS (5)
  - Anger [Not Recovered/Not Resolved]
  - Condition aggravated [Unknown]
  - Nerve injury [Unknown]
  - Hippocampal atrophy [Unknown]
  - Off label use [Unknown]
